FAERS Safety Report 14651046 (Version 1)
Quarter: 2018Q1

REPORT INFORMATION
  Report Type: Spontaneous
  Country: US (occurrence: US)
  Receive Date: 20180316
  Receipt Date: 20180316
  Transmission Date: 20180509
  Serious: Yes (Other)
  Sender: FDA-Public Use
  Company Number: US-ALLERGAN-1814395US

PATIENT
  Age: 33 Year
  Sex: Male

DRUGS (3)
  1. ETIDRONATE DISODIUM UNK [Suspect]
     Active Substance: ETIDRONATE DISODIUM
     Indication: PERI-SPINAL HETEROTOPIC OSSIFICATION
     Dosage: 1000 MG, QD
     Route: 065
     Dates: start: 2007
  2. ETIDRONATE DISODIUM UNK [Suspect]
     Active Substance: ETIDRONATE DISODIUM
     Dosage: 100 MG, Q WEEK
     Route: 065
  3. ETIDRONATE DISODIUM UNK [Suspect]
     Active Substance: ETIDRONATE DISODIUM
     Dosage: 1000 MG, QD
     Route: 065

REACTIONS (2)
  - Peri-spinal heterotopic ossification [Recovering/Resolving]
  - Pelvic mass [Unknown]
